FAERS Safety Report 10078334 (Version 1)
Quarter: 2014Q2

REPORT INFORMATION
  Report Type: Report from Study
  Country: FR (occurrence: FR)
  Receive Date: 20140415
  Receipt Date: 20140415
  Transmission Date: 20141212
  Serious: Yes (Other)
  Sender: FDA-Public Use
  Company Number: FR-ROCHE-GNE315176

PATIENT
  Age: 5 Year
  Sex: Female
  Weight: 18.72 kg

DRUGS (1)
  1. SOMATROPIN [Suspect]
     Indication: TURNER^S SYNDROME
     Dosage: 0.8 MG, QD
     Route: 058
     Dates: start: 20090528

REACTIONS (1)
  - Adenoidal hypertrophy [Recovered/Resolved]
